FAERS Safety Report 23686981 (Version 2)
Quarter: 2024Q2

REPORT INFORMATION
  Report Type: Spontaneous
  Country: US (occurrence: US)
  Receive Date: 20240329
  Receipt Date: 20240403
  Transmission Date: 20240716
  Serious: Yes (Life-Threatening, Hospitalization, Other)
  Sender: FDA-Public Use
  Company Number: US-BRISTOL-MYERS SQUIBB COMPANY-2024-029037

PATIENT
  Age: 83 Year
  Sex: Female
  Weight: 94 kg

DRUGS (6)
  1. ELIQUIS [Suspect]
     Active Substance: APIXABAN
     Dosage: UNK
  2. RETACRIT [Suspect]
     Active Substance: EPOETIN ALFA-EPBX
     Indication: Anaemia
     Dosage: 40000 IU, 1X/DAY(40,000 UNITS SUBQ)
     Route: 058
     Dates: start: 20240212
  3. FERRLECIT [Concomitant]
     Active Substance: SODIUM FERRIC GLUCONATE COMPLEX
     Dosage: 125 MG, 1X/DAY
     Route: 042
  4. TRANEXAMIC ACID [Concomitant]
     Active Substance: TRANEXAMIC ACID
     Dosage: 1 G, 1X/DAY
  5. NOREPINEPHRINE [Concomitant]
     Active Substance: NOREPINEPHRINE\NOREPINEPHRINE BITARTRATE
     Indication: Blood pressure measurement
     Dosage: 4 MG/ 250 ML
  6. VASOPRESSIN [Concomitant]
     Active Substance: VASOPRESSIN
     Dosage: UNK

REACTIONS (3)
  - Anaemia [Unknown]
  - Haemorrhage [Unknown]
  - International normalised ratio increased [Unknown]
